FAERS Safety Report 16534086 (Version 1)
Quarter: 2019Q3

REPORT INFORMATION
  Report Type: Spontaneous
  Country: US (occurrence: US)
  Receive Date: 20190705
  Receipt Date: 20190705
  Transmission Date: 20191004
  Serious: No
  Sender: FDA-Public Use
  Company Number: US-TEVA-2019-US-1070780

PATIENT

DRUGS (2)
  1. LETROZOLE TEVA [Suspect]
     Active Substance: LETROZOLE
     Route: 065
  2. IBRANCE [Concomitant]
     Active Substance: PALBOCICLIB

REACTIONS (3)
  - Hair growth rate abnormal [Unknown]
  - Product substitution issue [Unknown]
  - Alopecia [Recovered/Resolved]
